FAERS Safety Report 6325007-9 (Version None)
Quarter: 2009Q3

REPORT INFORMATION
  Report Type: 
  Country: None (occurrence: None)
  Receive Date: 20090824
  Receipt Date: 20090323
  Transmission Date: 20100115
  Serious: No
  Sender: FDA-Public Use
  Company Number: US-ABBOTT-09P-163-0564250-00

PATIENT
  Sex: Female
  Weight: 69.916 kg

DRUGS (5)
  1. NIASPAN [Suspect]
     Indication: BLOOD CHOLESTEROL INCREASED
     Route: 048
     Dates: start: 20090318, end: 20090319
  2. CABATROL [Concomitant]
     Indication: CONVULSION
  3. ARICEPT [Concomitant]
     Indication: AMNESIA
  4. EVISTA [Concomitant]
     Indication: OSTEOPOROSIS
  5. PRILOSEC [Concomitant]
     Indication: GASTROOESOPHAGEAL REFLUX DISEASE

REACTIONS (8)
  - ASTHMA [None]
  - ERYTHEMA [None]
  - HEART RATE INCREASED [None]
  - OEDEMA PERIPHERAL [None]
  - PARAESTHESIA [None]
  - PRESYNCOPE [None]
  - RESPIRATORY DISORDER [None]
  - SWELLING [None]
